FAERS Safety Report 9843055 (Version 1)
Quarter: 2014Q1

REPORT INFORMATION
  Report Type: Spontaneous
  Country: US (occurrence: US)
  Receive Date: 20140124
  Receipt Date: 20140124
  Transmission Date: 20141002
  Serious: Yes (Other)
  Sender: FDA-Public Use
  Company Number: US-CELGENEUS-163-21880-14012831

PATIENT
  Sex: 0

DRUGS (4)
  1. REVLIMID [Suspect]
     Indication: PLASMA CELL MYELOMA
     Dosage: 25 MILLIGRAM
     Route: 048
  2. MLN9708 [Suspect]
     Indication: PLASMA CELL MYELOMA
     Route: 048
  3. MLN9708 [Suspect]
     Route: 048
  4. DEXAMETHASONE [Suspect]
     Indication: PLASMA CELL MYELOMA
     Dosage: 20/10MG
     Route: 065

REACTIONS (9)
  - Hyperglycaemia [Unknown]
  - Rash [Unknown]
  - Neuropathy peripheral [Unknown]
  - Pneumonia [Unknown]
  - Anxiety [Unknown]
  - Plasma cell myeloma [Unknown]
  - Fatigue [Unknown]
  - Oedema peripheral [Unknown]
  - Diarrhoea [Unknown]
